FAERS Safety Report 6673671-7 (Version None)
Quarter: 2010Q2

REPORT INFORMATION
  Report Type: 
  Country: None (occurrence: None)
  Receive Date: 20100408
  Receipt Date: 20100324
  Transmission Date: 20101027
  Serious: Yes (Other)
  Sender: FDA-Public Use
  Company Number: TR-ASTRAZENECA-2010SE13109

PATIENT
  Age: 48 Year
  Sex: Female

DRUGS (2)
  1. ZOLMITRIPTAN [Suspect]
     Indication: MIGRAINE
  2. CITALOPRAM HYDROBROMIDE [Suspect]
     Indication: DEPRESSION

REACTIONS (2)
  - ACUTE MYOCARDIAL INFARCTION [None]
  - PRINZMETAL ANGINA [None]
